FAERS Safety Report 10469133 (Version 2)
Quarter: 2014Q4

REPORT INFORMATION
  Report Type: Spontaneous
  Country: DE (occurrence: None)
  Receive Date: 20140919
  Receipt Date: 20141104
  Transmission Date: 20150528
  Serious: Yes (Death, Other)
  Sender: FDA-Public Use
  Company Number: VAL_03388_2014

PATIENT
  Age: 48 Year
  Sex: Female
  Weight: 62 kg

DRUGS (7)
  1. DOLANTIN (DOLANTIN - PETHIDINE HYDROCHLORIDE) [Suspect]
     Active Substance: MEPERIDINE HYDROCHLORIDE
     Indication: PRODUCT USED FOR UNKNOWN INDICATION
     Dosage: NASOGASTRIC
  2. METOPROLOL [Suspect]
     Active Substance: METOPROLOL
     Indication: INTENTIONAL PRODUCT MISUSE
     Dosage: NASOGASTRIC
  3. ATOSIL [Concomitant]
     Active Substance: PROMETHAZINE HYDROCHLORIDE
  4. ETOMIDATE. [Concomitant]
     Active Substance: ETOMIDATE
  5. VOMEX A [Concomitant]
     Active Substance: DIMENHYDRINATE
     Indication: PRODUCT USED FOR UNKNOWN INDICATION
     Dosage: (DF)
  6. TRANXILIUM [Concomitant]
     Active Substance: CLORAZEPATE DIPOTASSIUM
  7. NORDAZEPAM [Suspect]
     Active Substance: NORDAZEPAM
     Indication: PRODUCT USED FOR UNKNOWN INDICATION
     Dosage: NASOGASTRIC

REACTIONS (12)
  - Wheezing [None]
  - Dizziness [None]
  - Pulmonary oedema [None]
  - Completed suicide [None]
  - Congestive cardiomyopathy [None]
  - Brain oedema [None]
  - Cardiogenic shock [None]
  - Toxicity to various agents [None]
  - Intentional overdose [None]
  - Loss of consciousness [None]
  - Fatigue [None]
  - Angina pectoris [None]
